FAERS Safety Report 9495427 (Version 2)
Quarter: 2013Q3

REPORT INFORMATION
  Report Type: Spontaneous
  Country: US (occurrence: US)
  Receive Date: 20130903
  Receipt Date: 20130903
  Transmission Date: 20140515
  Serious: No
  Sender: FDA-Public Use
  Company Number: US-PFIZER INC-2013231593

PATIENT
  Age: 51 Year
  Sex: Male
  Weight: 126.98 kg

DRUGS (2)
  1. ENBREL [Suspect]
     Indication: RHEUMATOID ARTHRITIS
     Dosage: 50 MG, WEEKLY
     Route: 058
     Dates: start: 201303
  2. METHOTREXATE SODIUM [Suspect]
     Dosage: 0.6 ML, WEEKLY

REACTIONS (4)
  - Dry skin [Not Recovered/Not Resolved]
  - Skin fissures [Unknown]
  - Rash [Recovering/Resolving]
  - Dermatitis contact [Unknown]
